FAERS Safety Report 18582023 (Version 10)
Quarter: 2021Q4

REPORT INFORMATION
  Report Type: Spontaneous
  Country: US (occurrence: US)
  Receive Date: 20201204
  Receipt Date: 20211004
  Transmission Date: 20220303
  Serious: Yes (Other)
  Sender: FDA-Public Use
  Company Number: US-PFIZER INC-2019539876

PATIENT
  Age: 57 Year
  Sex: Male

DRUGS (3)
  1. LYRICA [Suspect]
     Active Substance: PREGABALIN
     Indication: Neuralgia
     Dosage: 100 MG, ONCE A DAY (TAKE ONE CAP PO QHS (EVERY NIGHT AT BEDTIME) FOR A WEEK)
     Route: 048
  2. LYRICA [Suspect]
     Active Substance: PREGABALIN
     Dosage: 100 MG TWO TIMES A DAY
     Route: 048
  3. LYRICA [Suspect]
     Active Substance: PREGABALIN
     Dosage: 100MG THREE TIMES A DAY
     Route: 048

REACTIONS (3)
  - Multiple sclerosis [Unknown]
  - Irritability [Unknown]
  - Withdrawal syndrome [Unknown]
